FAERS Safety Report 9946320 (Version 1)
Quarter: 2014Q1

REPORT INFORMATION
  Report Type: Spontaneous
  Country: US (occurrence: US)
  Receive Date: 20140303
  Receipt Date: 20140303
  Transmission Date: 20141002
  Serious: No
  Sender: FDA-Public Use
  Company Number: US-AMGEN-USASP2013087108

PATIENT
  Age: 53 Year
  Sex: Male
  Weight: 72.56 kg

DRUGS (3)
  1. ENBREL [Suspect]
     Indication: PRODUCT USED FOR UNKNOWN INDICATION
     Dosage: 50 MG, QWK
     Route: 058
  2. PRAMIPEXOLE [Concomitant]
     Dosage: 1 MG, UNK
  3. THYROID [Concomitant]
     Dosage: 30 MG, UNK

REACTIONS (1)
  - Vitreous floaters [Unknown]
